FAERS Safety Report 22319898 (Version 1)
Quarter: 2023Q2

REPORT INFORMATION
  Report Type: Report from Study
  Country: US (occurrence: US)
  Receive Date: 20230515
  Receipt Date: 20230515
  Transmission Date: 20230722
  Serious: No
  Sender: FDA-Public Use
  Company Number: US-002147023-NVSC2023US108266

PATIENT
  Age: 65 Year
  Sex: Female
  Weight: 131.54 kg

DRUGS (2)
  1. COSENTYX [Suspect]
     Active Substance: SECUKINUMAB
     Indication: Psoriasis
     Dosage: 300 MG, BID
     Route: 058
     Dates: start: 20230401
  2. TRULICITY [Suspect]
     Active Substance: DULAGLUTIDE
     Indication: Glucose tolerance impaired
     Dosage: UNK
     Route: 065

REACTIONS (8)
  - Psoriasis [Unknown]
  - Pruritus [Unknown]
  - Erythema [Unknown]
  - Rash [Unknown]
  - Swelling [Unknown]
  - Glucose tolerance impaired [Unknown]
  - Concomitant disease aggravated [Unknown]
  - Rosacea [Unknown]

NARRATIVE: CASE EVENT DATE: 20230505
